FAERS Safety Report 26208065 (Version 1)
Quarter: 2025Q4

REPORT INFORMATION
  Report Type: Spontaneous
  Country: EU (occurrence: EU)
  Receive Date: 20251229
  Receipt Date: 20251229
  Transmission Date: 20260118
  Serious: Yes (Other)
  Sender: AMGEN
  Company Number: EU-AMGEN-DEUSP2025254115

PATIENT

DRUGS (1)
  1. PREDNISONE [Suspect]
     Active Substance: PREDNISONE
     Indication: Glomerulonephritis membranoproliferative
     Dosage: UNK
     Route: 048

REACTIONS (4)
  - Pneumonia [Unknown]
  - Pancreatic enzymes increased [Unknown]
  - Drug effective for unapproved indication [Unknown]
  - Off label use [Unknown]
